FAERS Safety Report 8377243-8 (Version None)
Quarter: 2012Q2

REPORT INFORMATION
  Report Type: 
  Country: None (occurrence: None)
  Receive Date: 20120522
  Receipt Date: 20120518
  Transmission Date: 20120825
  Serious: Yes (Hospitalization)
  Sender: FDA-Public Use
  Company Number: PHFR2012GB001604

PATIENT
  Sex: Female
  Weight: 46 kg

DRUGS (6)
  1. ACETAMINOPHEN [Concomitant]
  2. FOLIC ACID [Concomitant]
     Indication: SICKLE CELL ANAEMIA
     Dosage: 5 MG, QD
     Route: 048
  3. PENICILLIN V [Concomitant]
     Indication: SICKLE CELL ANAEMIA
     Dosage: 250 MG, BID
  4. EXJADE [Suspect]
     Indication: SICKLE CELL ANAEMIA
     Dosage: 1125 MG, DAILY
     Route: 048
  5. DICLOFENAC SODIUM [Concomitant]
     Route: 048
  6. CODEINE SULFATE [Concomitant]
     Route: 048

REACTIONS (1)
  - PANCREATITIS [None]
